FAERS Safety Report 4361016-7 (Version None)
Quarter: 2004Q2

REPORT INFORMATION
  Report Type: 
  Country: None (occurrence: None)
  Receive Date: 20040517
  Receipt Date: 20040506
  Transmission Date: 20050107
  Serious: Yes (Hospitalization)
  Sender: FDA-Public Use
  Company Number: GB-JNJFOC-20040500993

PATIENT
  Age: 67 Year
  Sex: Female

DRUGS (6)
  1. REMICADE (INFLIXIMAB, RECOMBINANT) LYOPHILIZED POWDER [Suspect]
     Indication: RHEUMATOID ARTHRITIS
     Dosage: 180 MG, INTRAVENOUS
     Route: 042
     Dates: start: 20020402, end: 20021101
  2. VIOXX [Concomitant]
  3. ACETAMINOPHEN [Concomitant]
  4. DITROPAN [Concomitant]
  5. AZATHIOPRINE [Concomitant]
  6. PREDNISOLONE [Concomitant]

REACTIONS (1)
  - STENT PLACEMENT [None]
